FAERS Safety Report 18969116 (Version 2)
Quarter: 2021Q2

REPORT INFORMATION
  Report Type: Other
  Country: US (occurrence: US)
  Receive Date: 20210304
  Receipt Date: 20210405
  Transmission Date: 20210717
  Serious: Yes (Other)
  Sender: FDA-Public Use
  Company Number: US-ROCHE-2775863

PATIENT
  Sex: Female

DRUGS (7)
  1. VITAMIN D3 [Concomitant]
     Active Substance: CHOLECALCIFEROL
  2. CALCIUM [Concomitant]
     Active Substance: CALCIUM
  3. LISINOPRIL. [Concomitant]
     Active Substance: LISINOPRIL
  4. SULAR [Concomitant]
     Active Substance: NISOLDIPINE
  5. PREDNISONE. [Concomitant]
     Active Substance: PREDNISONE
  6. EFFEXOR XR [Concomitant]
     Active Substance: VENLAFAXINE HYDROCHLORIDE
  7. OCREVUS [Suspect]
     Active Substance: OCRELIZUMAB
     Indication: RELAPSING MULTIPLE SCLEROSIS
     Dosage: SUBSEQUENTLY, SHE RECEIVED OCRELIZUMAB ON 08/FEB/2019, 08/AUG/2019, 06/FEB/2020, 05/AUG/2020 AND 12/
     Route: 065
     Dates: start: 20190124

REACTIONS (1)
  - Herpes zoster [Not Recovered/Not Resolved]
